FAERS Safety Report 15534850 (Version 1)
Quarter: 2018Q4

REPORT INFORMATION
  Report Type: Spontaneous
  Country: US (occurrence: US)
  Receive Date: 20181022
  Receipt Date: 20181022
  Transmission Date: 20190205
  Serious: No
  Sender: FDA-Public Use
  Company Number: US-TEVA-2018-US-965158

PATIENT
  Sex: Male

DRUGS (1)
  1. WARFARIN SODIUM TEVA [Suspect]
     Active Substance: WARFARIN SODIUM
     Indication: HEART VALVE REPLACEMENT
     Route: 065

REACTIONS (3)
  - International normalised ratio increased [Unknown]
  - Product substitution issue [Unknown]
  - Drug ineffective [Unknown]
